FAERS Safety Report 9665114 (Version 1)
Quarter: 2013Q4

REPORT INFORMATION
  Report Type: Spontaneous
  Country: US (occurrence: US)
  Receive Date: 20131101
  Receipt Date: 20131101
  Transmission Date: 20140711
  Serious: No
  Sender: FDA-Public Use
  Company Number: US-PFIZER INC-2013312963

PATIENT
  Sex: Male

DRUGS (2)
  1. CARDURA [Suspect]
     Dosage: UNK
  2. BENICAR [Suspect]
     Dosage: UNK

REACTIONS (3)
  - Nocturia [Unknown]
  - Blood pressure inadequately controlled [Unknown]
  - Feeling hot [Unknown]
